FAERS Safety Report 15566966 (Version 11)
Quarter: 2020Q3

REPORT INFORMATION
  Report Type: Report from Study
  Country: US (occurrence: US)
  Receive Date: 20181030
  Receipt Date: 20200923
  Transmission Date: 20201102
  Serious: Yes (Hospitalization)
  Sender: FDA-Public Use
  Company Number: US-EISAI MEDICAL RESEARCH-EC-2018-046970

PATIENT
  Age: 59 Year
  Sex: Female
  Weight: 59 kg

DRUGS (16)
  1. TYLENOL [Concomitant]
     Active Substance: ACETAMINOPHEN
     Route: 065
  2. KLOR?CON [Concomitant]
     Active Substance: POTASSIUM CHLORIDE
     Route: 065
  3. LENVIMA [Suspect]
     Active Substance: LENVATINIB
     Dosage: DOSE REDUCED (DOSE UNKNOWN)
     Route: 048
     Dates: start: 20181130, end: 2018
  4. LENVIMA [Suspect]
     Active Substance: LENVATINIB
     Route: 048
     Dates: start: 20181206
  5. WARFARIN SODIUM. [Concomitant]
     Active Substance: WARFARIN SODIUM
     Route: 065
  6. HYDROCHLOROTHIAZIDE. [Concomitant]
     Active Substance: HYDROCHLOROTHIAZIDE
     Route: 065
  7. SOTALOL. [Concomitant]
     Active Substance: SOTALOL
     Route: 065
  8. HYDRALAZINE [Concomitant]
     Active Substance: HYDRALAZINE HYDROCHLORIDE
     Route: 065
  9. METFORMIN ER [Concomitant]
     Active Substance: METFORMIN HYDROCHLORIDE
     Route: 065
  10. GLIPIZIDE. [Concomitant]
     Active Substance: GLIPIZIDE
     Route: 065
  11. CRESTOR [Concomitant]
     Active Substance: ROSUVASTATIN CALCIUM
     Route: 065
  12. DILTIAZEM. [Concomitant]
     Active Substance: DILTIAZEM
     Route: 065
  13. CALCITRIOL. [Concomitant]
     Active Substance: CALCITRIOL
     Route: 065
  14. LENVIMA [Suspect]
     Active Substance: LENVATINIB
     Indication: THYROID CANCER
     Route: 048
     Dates: start: 201808, end: 20181129
  15. LOSARTAN. [Concomitant]
     Active Substance: LOSARTAN
     Route: 065
  16. SYNTHROID [Concomitant]
     Active Substance: LEVOTHYROXINE SODIUM
     Route: 065

REACTIONS (33)
  - Headache [Not Recovered/Not Resolved]
  - Neck pain [Not Recovered/Not Resolved]
  - Dry skin [Recovering/Resolving]
  - Skin fissures [Recovering/Resolving]
  - Blood glucose increased [Not Recovered/Not Resolved]
  - Fatigue [Unknown]
  - Decreased appetite [Unknown]
  - Diarrhoea [Not Recovered/Not Resolved]
  - Alopecia [Unknown]
  - Urine calcium increased [Unknown]
  - Weight decreased [Not Recovered/Not Resolved]
  - Rash macular [Unknown]
  - White coat hypertension [Unknown]
  - Stomatitis [Not Recovered/Not Resolved]
  - Tendon discomfort [Recovered/Resolved]
  - Oral candidiasis [Recovered/Resolved]
  - Erythema [Unknown]
  - Abdominal discomfort [Unknown]
  - Swollen tongue [Recovered/Resolved]
  - Rash [Unknown]
  - Hypertension [Not Recovered/Not Resolved]
  - Tongue dry [Unknown]
  - Dry mouth [Not Recovered/Not Resolved]
  - Muscle spasms [Not Recovered/Not Resolved]
  - Peripheral swelling [Unknown]
  - Skin depigmentation [Unknown]
  - Malignant neoplasm progression [Unknown]
  - Epistaxis [Recovering/Resolving]
  - Pain in extremity [Unknown]
  - Oral pain [Not Recovered/Not Resolved]
  - Feeling cold [Recovering/Resolving]
  - Back pain [Unknown]
  - Nausea [Recovered/Resolved]

NARRATIVE: CASE EVENT DATE: 2018
